FAERS Safety Report 6844030-9 (Version None)
Quarter: 2010Q3

REPORT INFORMATION
  Report Type: 
  Country: None (occurrence: None)
  Receive Date: 20100714
  Receipt Date: 20100714
  Transmission Date: 20110219
  Serious: Yes (Hospitalization)
  Sender: FDA-Public Use
  Company Number: None

PATIENT
  Age: 32 Year
  Sex: Female
  Weight: 86 kg

DRUGS (10)
  1. LITHIUM CARBONATE [Suspect]
     Indication: BIPOLAR DISORDER
     Dosage: 300 MG BID PO, PRIOR TO ADMISSION
     Route: 048
  2. NOVOLOG [Concomitant]
  3. INSULIN [Concomitant]
  4. MECLIZINE [Concomitant]
  5. LOVASTATIN [Concomitant]
  6. LEVOTHYROXINE SODIUM [Concomitant]
  7. LISINOPRIL [Concomitant]
  8. VENLAFAXINE [Concomitant]
  9. QUETIAPINE [Concomitant]
  10. MULTI-VITAMIN [Concomitant]

REACTIONS (4)
  - ENCEPHALOPATHY [None]
  - HYPERGLYCAEMIA [None]
  - HYPONATRAEMIA [None]
  - THERAPEUTIC AGENT TOXICITY [None]
